FAERS Safety Report 16796336 (Version 1)
Quarter: 2019Q3

REPORT INFORMATION
  Report Type: Other
  Country: PL (occurrence: PL)
  Receive Date: 20190911
  Receipt Date: 20190911
  Transmission Date: 20191005
  Serious: Yes (Hospitalization)
  Sender: FDA-Public Use
  Company Number: PL-COLLEGIUM PHARMACEUTICAL, INC.-PL-2019COL001052

PATIENT
  Age: 38 Year
  Sex: Female
  Weight: 61 kg

DRUGS (6)
  1. NEORELIUM [Suspect]
     Active Substance: DIAZEPAM
     Indication: INSOMNIA
     Dosage: 5 MG, QD
     Route: 048
     Dates: start: 20160408, end: 20160409
  2. TAPENTADOL EXTENDED RELEASE [Suspect]
     Active Substance: TAPENTADOL
     Indication: PROCEDURAL PAIN
     Dosage: 50 MG, EVERY 12 HRS
     Route: 048
     Dates: start: 20160408, end: 20160409
  3. PYRALGIN                           /03155201/ [Suspect]
     Active Substance: METAMIZOLE\NIMESULIDE
     Indication: PROCEDURAL PAIN
     Dosage: 2.5 G, EVERY 12 HRS
     Route: 042
     Dates: start: 20160407, end: 20160408
  4. KETONAL                            /00321701/ [Suspect]
     Active Substance: KETOPROFEN
     Indication: PROCEDURAL PAIN
     Dosage: 100 MG, EVERY 12 HRS
     Route: 030
     Dates: start: 20160407, end: 20160410
  5. PARACETAMOL [Suspect]
     Active Substance: ACETAMINOPHEN
     Indication: PYREXIA
     Dosage: 1 G, UNK
     Route: 048
     Dates: start: 20160409, end: 20160409
  6. PARACETAMOL [Suspect]
     Active Substance: ACETAMINOPHEN
     Indication: PROCEDURAL PAIN
     Dosage: 1 G, UNK
     Route: 042
     Dates: start: 20160407, end: 20160407

REACTIONS (10)
  - Fatigue [Recovered/Resolved]
  - Mucosal dryness [Recovered/Resolved]
  - Body temperature increased [Recovered/Resolved]
  - Sedation [Recovered/Resolved]
  - Fatigue [Recovered/Resolved]
  - Diarrhoea [Recovered/Resolved]
  - Mucosal dryness [Recovered/Resolved]
  - Nausea [Recovered/Resolved]
  - Sleep disorder [Recovered/Resolved]
  - Sedation [Recovered/Resolved]

NARRATIVE: CASE EVENT DATE: 20160408
